FAERS Safety Report 4859873-0 (Version None)
Quarter: 2005Q4

REPORT INFORMATION
  Report Type: 
  Country: None (occurrence: None)
  Receive Date: 20051215
  Receipt Date: 20051207
  Transmission Date: 20060501
  Serious: Yes (Disabling)
  Sender: FDA-Public Use
  Company Number: 167-20785-05100042

PATIENT
  Age: 49 Year
  Sex: Female

DRUGS (2)
  1. THALIDOMIDE - PHARMION(THALIDOMIDE) (50 MILLIGRAM, CAPSULES) [Suspect]
     Indication: AMYLOIDOSIS
     Dosage: 50 MG, DAILY, ORAL
     Route: 048
     Dates: start: 20050901, end: 20050101
  2. DEXAMETHASONE [Concomitant]

REACTIONS (7)
  - BLINDNESS UNILATERAL [None]
  - DRY EYE [None]
  - HEADACHE [None]
  - SCOTOMA [None]
  - VASOSPASM [None]
  - VISION BLURRED [None]
  - VISUAL DISTURBANCE [None]
